FAERS Safety Report 16635834 (Version 1)
Quarter: 2019Q3

REPORT INFORMATION
  Report Type: Spontaneous
  Country: US (occurrence: US)
  Receive Date: 20190725
  Receipt Date: 20190725
  Transmission Date: 20191004
  Serious: Yes (Hospitalization)
  Sender: FDA-Public Use
  Company Number: None

PATIENT
  Age: 59 Year
  Sex: Female

DRUGS (12)
  1. METHYLPRED [Concomitant]
     Active Substance: METHYLPREDNISOLONE
  2. ELIQUIS [Concomitant]
     Active Substance: APIXABAN
  3. LOSARTAN. [Concomitant]
     Active Substance: LOSARTAN
  4. BUT/APAP/CAF [Concomitant]
  5. DEXAMETHASON [Concomitant]
     Active Substance: DEXAMETHASONE
  6. NYSTATIN. [Concomitant]
     Active Substance: NYSTATIN
  7. BENZONATATE. [Concomitant]
     Active Substance: BENZONATATE
  8. BACLOFEN. [Concomitant]
     Active Substance: BACLOFEN
  9. CEPHALEXIN. [Concomitant]
     Active Substance: CEPHALEXIN
  10. OMEPRAZOLE. [Concomitant]
     Active Substance: OMEPRAZOLE
  11. CICLOPIROX. [Concomitant]
     Active Substance: CICLOPIROX
  12. IBRANCE [Suspect]
     Active Substance: PALBOCICLIB
     Indication: BREAST CANCER
     Route: 048
     Dates: start: 20180918

REACTIONS (1)
  - Dyspnoea [None]
